FAERS Safety Report 15658907 (Version 1)
Quarter: 2018Q4

REPORT INFORMATION
  Report Type: Spontaneous
  Country: US (occurrence: US)
  Receive Date: 20181126
  Receipt Date: 20181126
  Transmission Date: 20190205
  Serious: Yes (Other)
  Sender: FDA-Public Use
  Company Number: US-ANIPHARMA-2018-US-018339

PATIENT
  Age: 32 Year
  Sex: Male

DRUGS (1)
  1. SULFAMETHOXAZOLE + TRIMETHOPRIM (NON-SPECIFIC) [Suspect]
     Active Substance: SULFAMETHOXAZOLE\TRIMETHOPRIM
     Indication: ACNE

REACTIONS (2)
  - Drug reaction with eosinophilia and systemic symptoms [Unknown]
  - Vogt-Koyanagi-Harada syndrome [Unknown]
